FAERS Safety Report 5385283-6 (Version None)
Quarter: 2007Q3

REPORT INFORMATION
  Report Type: 
  Country: None (occurrence: None)
  Receive Date: 20070712
  Receipt Date: 20070703
  Transmission Date: 20080115
  Serious: Yes (Hospitalization, Other)
  Sender: FDA-Public Use
  Company Number: US-ROCHE-484950

PATIENT
  Age: 82 Year
  Sex: Female
  Weight: 58.1 kg

DRUGS (3)
  1. BONIVA [Suspect]
     Indication: OSTEOPOROSIS
     Route: 042
     Dates: start: 20070222, end: 20070222
  2. CLOPIDOGREL [Concomitant]
     Dosage: REPORTED AS: CLOPIDOGREL SULFATE
  3. DILTIAZEM [Concomitant]

REACTIONS (7)
  - COLD SWEAT [None]
  - FEELING ABNORMAL [None]
  - FEELING HOT [None]
  - HYPERSENSITIVITY [None]
  - HYPOTENSION [None]
  - MALAISE [None]
  - SYNCOPE VASOVAGAL [None]
